FAERS Safety Report 4481192-5 (Version None)
Quarter: 2004Q4

REPORT INFORMATION
  Report Type: 
  Country: None (occurrence: None)
  Receive Date: 20041021
  Receipt Date: 20041011
  Transmission Date: 20050328
  Serious: Yes (Life-Threatening, Hospitalization)
  Sender: FDA-Public Use
  Company Number: GB-JNJFOC-20041003542

PATIENT
  Age: 31 Year
  Sex: Female

DRUGS (5)
  1. RISPERDAL [Suspect]
     Route: 049
  2. OLANZAPINE [Concomitant]
     Route: 049
  3. FLUOXETINE [Concomitant]
     Indication: DEPRESSION
     Route: 049
  4. CHLORPROMAZINE [Concomitant]
     Indication: ANXIETY
     Route: 049
  5. DIAZEPAM [Concomitant]
     Dosage: DOSE: 10 MG OD PRN
     Route: 049

REACTIONS (2)
  - ALANINE AMINOTRANSFERASE INCREASED [None]
  - SEROTONIN SYNDROME [None]
